FAERS Safety Report 7070639-6 (Version None)
Quarter: 2010Q4

REPORT INFORMATION
  Report Type: 
  Country: None (occurrence: None)
  Receive Date: 20101029
  Receipt Date: 20101019
  Transmission Date: 20110411
  Serious: Yes (Other)
  Sender: FDA-Public Use
  Company Number: CH-PFIZER INC-2010132268

PATIENT
  Age: 26 Year
  Sex: Female

DRUGS (1)
  1. DETRUSITOL [Suspect]
     Dosage: 4 MG, 1X/DAY

REACTIONS (3)
  - CATHETER PLACEMENT [None]
  - DECREASED APPETITE [None]
  - WEIGHT DECREASED [None]
